FAERS Safety Report 16236399 (Version 1)
Quarter: 2019Q2

REPORT INFORMATION
  Report Type: Report from Study
  Country: JP (occurrence: JP)
  Receive Date: 20190425
  Receipt Date: 20190425
  Transmission Date: 20190711
  Serious: Yes (Other)
  Sender: FDA-Public Use
  Company Number: JP-SAKK-2019SA110812AA

PATIENT
  Age: 30 Year
  Sex: Male

DRUGS (2)
  1. EFTRENONACOG ALFA [Suspect]
     Active Substance: EFTRENONACOG ALFA
     Indication: FACTOR IX DEFICIENCY
     Dosage: 3000 IU, QW
     Route: 042
  2. BENEFIX [Concomitant]
     Active Substance: COAGULATION FACTOR IX RECOMBINANT HUMAN\ISOPROPYL ALCOHOL
     Indication: FACTOR IX DEFICIENCY
     Dosage: UNK UNK, BIW
     Route: 042

REACTIONS (1)
  - Haemorrhage [Recovered/Resolved]
